FAERS Safety Report 10637838 (Version 1)
Quarter: 2014Q4

REPORT INFORMATION
  Report Type: Spontaneous
  Country: US (occurrence: None)
  Receive Date: 20141204
  Receipt Date: 20141204
  Transmission Date: 20150529
  Serious: Yes (Other)
  Sender: FDA-Public Use
  Company Number: None

PATIENT
  Sex: Female

DRUGS (5)
  1. WELLBUTRIN [Concomitant]
     Active Substance: BUPROPION HYDROCHLORIDE
  2. AMPYRA [Suspect]
     Active Substance: DALFAMPRIDINE
     Route: 048
     Dates: start: 20140828
  3. FLUOXETINE [Concomitant]
     Active Substance: FLUOXETINE\FLUOXETINE HYDROCHLORIDE
  4. OXYBUTYNIN [Concomitant]
     Active Substance: OXYBUTYNIN
  5. INTERFERON BETA-1B [Concomitant]
     Active Substance: INTERFERON BETA-1B

REACTIONS (3)
  - Self-medication [None]
  - Urinary tract infection [None]
  - Pyrexia [None]

NARRATIVE: CASE EVENT DATE: 20141027
